FAERS Safety Report 7996449-0 (Version None)
Quarter: 2011Q4

REPORT INFORMATION
  Report Type: 
  Country: None (occurrence: None)
  Receive Date: 20111220
  Receipt Date: 20070122
  Transmission Date: 20120403
  Serious: Yes (Death)
  Sender: FDA-Public Use
  Company Number: PHHY2007MX011513

PATIENT
  Sex: Female

DRUGS (1)
  1. DIOVAN HCT [Suspect]
     Indication: HYPERTENSION
     Dosage: 1 DF (160/25) MG, QD
     Route: 048
     Dates: start: 20031001, end: 20060701

REACTIONS (2)
  - DEATH [None]
  - METABOLIC ACIDOSIS [None]
